FAERS Safety Report 21833879 (Version 2)
Quarter: 2025Q2

REPORT INFORMATION
  Report Type: Report from Study
  Country: PL (occurrence: PL)
  Receive Date: 20230108
  Receipt Date: 20250616
  Transmission Date: 20250717
  Serious: Yes (Other)
  Sender: AUROBINDO
  Company Number: PL-SUN PHARMACEUTICAL INDUSTRIES LTD-2022R1-371141

PATIENT
  Age: 31 Year
  Sex: Male

DRUGS (2)
  1. ARIPIPRAZOLE [Suspect]
     Active Substance: ARIPIPRAZOLE
     Indication: Schizophrenia
     Dosage: 15 MILLIGRAM, ONCE A DAY
     Route: 065
     Dates: start: 2016
  2. AMANTADINE [Concomitant]
     Active Substance: AMANTADINE
     Indication: Schizophrenia
     Route: 065

REACTIONS (2)
  - Sexual dysfunction [Recovering/Resolving]
  - Erectile dysfunction [Recovering/Resolving]

NARRATIVE: CASE EVENT DATE: 20180101
